FAERS Safety Report 12679649 (Version 3)
Quarter: 2016Q4

REPORT INFORMATION
  Report Type: Spontaneous
  Country: US (occurrence: US)
  Receive Date: 20160824
  Receipt Date: 20161122
  Transmission Date: 20170207
  Serious: No
  Sender: FDA-Public Use
  Company Number: US-PFIZER INC-2016394567

PATIENT
  Age: 55 Year
  Sex: Female
  Weight: 61 kg

DRUGS (8)
  1. FLUCONAZOLE. [Suspect]
     Active Substance: FLUCONAZOLE
     Dosage: 200 MG, 4X/DAY
     Route: 048
     Dates: start: 201606
  2. IBRANCE [Concomitant]
     Active Substance: PALBOCICLIB
     Indication: BREAST CANCER
     Dosage: 125 MG, UNK
     Dates: start: 201508
  3. IBRANCE [Concomitant]
     Active Substance: PALBOCICLIB
     Dosage: 100 MG, CYCLIC (ONE CAPSULE DAILY FOR 21 DAYS AND SEVEN DAYS OFF)
     Route: 048
     Dates: start: 201605
  4. VITAMIN D [Concomitant]
     Active Substance: CHOLECALCIFEROL
     Indication: SUPPLEMENTATION THERAPY
     Dosage: 1000MG ONE CAPSULE EVERY OTHER DAY
     Route: 048
  5. XGEVA [Concomitant]
     Active Substance: DENOSUMAB
     Indication: BONE DISORDER
     Dosage: ONE INJECTION ONCE A MONTH
     Route: 030
     Dates: start: 201504
  6. FASLODEX [Concomitant]
     Active Substance: FULVESTRANT
     Indication: THERAPEUTIC RESPONSE INCREASED
     Dosage: TWO INJECTIONS IN THE BUTT ONE A MONTH
     Dates: start: 201508
  7. PRILOSEC [Concomitant]
     Active Substance: OMEPRAZOLE MAGNESIUM
     Indication: DYSPEPSIA
     Dosage: ONE CAPSULE DAILY
     Route: 048
  8. FLUCONAZOLE. [Suspect]
     Active Substance: FLUCONAZOLE
     Indication: COCCIDIOIDOMYCOSIS
     Dosage: 200 MG, 2X/DAY
     Route: 048
     Dates: start: 201604

REACTIONS (11)
  - Dysphagia [Not Recovered/Not Resolved]
  - Dysgeusia [Unknown]
  - Fungal infection [Unknown]
  - Erythema [Not Recovered/Not Resolved]
  - Drug ineffective for unapproved indication [Unknown]
  - Product taste abnormal [Unknown]
  - Alopecia [Not Recovered/Not Resolved]
  - Condition aggravated [Not Recovered/Not Resolved]
  - Product coating issue [Unknown]
  - Skin lesion [Recovered/Resolved]
  - Sinusitis [Recovering/Resolving]

NARRATIVE: CASE EVENT DATE: 201604
